FAERS Safety Report 9095340 (Version 2)
Quarter: 2013Q2

REPORT INFORMATION
  Report Type: Spontaneous
  Country: AU (occurrence: AU)
  Receive Date: 20130219
  Receipt Date: 20130604
  Transmission Date: 20140414
  Serious: Yes (Other)
  Sender: FDA-Public Use
  Company Number: PHHY2013AU015504

PATIENT
  Age: 80 Year
  Sex: Male

DRUGS (8)
  1. ETHAMBUTOL [Suspect]
     Indication: TUBERCULOSIS
     Dosage: 600 MG, UNK
  2. RIFAMPICIN [Suspect]
     Indication: TUBERCULOSIS
     Dosage: 450 MG, UNK
  3. ISONIAZID [Suspect]
     Indication: TUBERCULOSIS
     Dosage: 200 MG, UNK
  4. PYRAZINAMIDE SANDOZ [Suspect]
     Indication: TUBERCULOSIS
     Dosage: 500 MG, UNK
  5. PANTOPRAZOLE [Suspect]
  6. PARACETAMOL [Suspect]
  7. MOXIFLOXACIN [Concomitant]
  8. AMIKACIN [Concomitant]

REACTIONS (4)
  - Hepatotoxicity [Recovering/Resolving]
  - Liver function test abnormal [Recovering/Resolving]
  - Drug-induced liver injury [Recovering/Resolving]
  - International normalised ratio increased [Recovered/Resolved]
